FAERS Safety Report 24068668 (Version 1)
Quarter: 2024Q3

REPORT INFORMATION
  Report Type: Report from Study
  Country: TW (occurrence: TW)
  Receive Date: 20240710
  Receipt Date: 20240710
  Transmission Date: 20241017
  Serious: No
  Sender: ROCHE
  Company Number: TW-CHUGAI-2023033184

PATIENT
  Age: 65 Year
  Sex: Male

DRUGS (2)
  1. ALECENSA [Suspect]
     Active Substance: ALECTINIB HYDROCHLORIDE
     Indication: Non-small cell lung cancer
     Dosage: 1200 MILLIGRAM
     Route: 048
  2. ALECENSA [Suspect]
     Active Substance: ALECTINIB HYDROCHLORIDE
     Dosage: 900 MILLIGRAM
     Route: 048

REACTIONS (2)
  - Renal impairment [Recovered/Resolved]
  - Myalgia [Recovered/Resolved]
